FAERS Safety Report 21640120 (Version 3)
Quarter: 2023Q2

REPORT INFORMATION
  Report Type: Report from Study
  Country: CL (occurrence: CL)
  Receive Date: 20221124
  Receipt Date: 20230412
  Transmission Date: 20230721
  Serious: Yes (Hospitalization, Other)
  Sender: FDA-Public Use
  Company Number: CL-VER-202200005

PATIENT
  Age: 74 Year
  Sex: Male

DRUGS (3)
  1. TRIPTORELIN PAMOATE [Suspect]
     Active Substance: TRIPTORELIN PAMOATE
     Indication: Product used for unknown indication
     Route: 065
     Dates: start: 20200213
  2. XTANDI [Suspect]
     Active Substance: ENZALUTAMIDE
     Indication: Prostate cancer metastatic
     Dosage: 120 CAP ? 30 FND, 160 MG JOURNAL (160 MG)
     Route: 048
     Dates: start: 20181210, end: 20230128
  3. XTANDI [Suspect]
     Active Substance: ENZALUTAMIDE
     Indication: Prostate cancer metastatic
     Dosage: 120 CAP X 30 FND; 40 MG JOURNAL (40 MG)
     Route: 048
     Dates: end: 20230128

REACTIONS (7)
  - Drug ineffective [Unknown]
  - Ear disorder [Unknown]
  - Prostatectomy [Unknown]
  - Intentional underdose [Unknown]
  - Bone neoplasm [Unknown]
  - Product supply issue [Not Recovered/Not Resolved]
  - Treatment noncompliance [Unknown]
